FAERS Safety Report 5731271-7 (Version None)
Quarter: 2008Q2

REPORT INFORMATION
  Report Type: 
  Country: None (occurrence: None)
  Receive Date: 20080505
  Receipt Date: 20080418
  Transmission Date: 20081010
  Serious: Yes (Other)
  Sender: FDA-Public Use
  Company Number: SPV1-2008-00696

PATIENT
  Age: 71 Year
  Sex: Male
  Weight: 85 kg

DRUGS (3)
  1. MIDON(MIDODRINE HYDROCHLORIDE) TABLET [Suspect]
     Indication: ORTHOSTATIC HYPOTENSION
     Dosage: 2.5 MG, 3X DAY:TID, 7.5 MG DAILY (2.5 MG AM AND 5 MG AT LUNCHTIME
     Dates: start: 20080116, end: 20080120
  2. MIDON(MIDODRINE HYDROCHLORIDE) TABLET [Suspect]
     Indication: ORTHOSTATIC HYPOTENSION
     Dosage: 2.5 MG, 3X DAY:TID, 7.5 MG DAILY (2.5 MG AM AND 5 MG AT LUNCHTIME
     Dates: start: 20080121, end: 20080122
  3. DIGOXIN [Concomitant]

REACTIONS (1)
  - ATRIAL FIBRILLATION [None]
